FAERS Safety Report 9919481 (Version 1)
Quarter: 2014Q1

REPORT INFORMATION
  Report Type: Spontaneous
  Country: JP (occurrence: JP)
  Receive Date: 20140224
  Receipt Date: 20140224
  Transmission Date: 20141002
  Serious: Yes (Other)
  Sender: FDA-Public Use
  Company Number: JP-SA-2014SA022278

PATIENT
  Age: 75 Year
  Sex: Male

DRUGS (5)
  1. DOCETAXEL [Suspect]
     Indication: ADENOCARCINOMA
     Route: 065
     Dates: start: 201204
  2. CARBOPLATIN [Suspect]
     Indication: ADENOCARCINOMA
     Route: 065
     Dates: start: 201204
  3. CISPLATIN [Suspect]
     Indication: ADENOCARCINOMA
     Route: 065
  4. FLUOROURACIL [Suspect]
     Indication: ADENOCARCINOMA
     Route: 065
  5. CETUXIMAB [Suspect]
     Indication: ADENOCARCINOMA
     Route: 065

REACTIONS (6)
  - Electrolyte imbalance [Unknown]
  - Off label use [Unknown]
  - Neutrophil count decreased [Unknown]
  - Decreased appetite [Unknown]
  - Dermatitis acneiform [Unknown]
  - Hypoaesthesia [Unknown]
